FAERS Safety Report 13255019 (Version 1)
Quarter: 2017Q1

REPORT INFORMATION
  Report Type: Report from Study
  Country: BR (occurrence: BR)
  Receive Date: 20170221
  Receipt Date: 20170221
  Transmission Date: 20170428
  Serious: Yes (Other)
  Sender: FDA-Public Use
  Company Number: PHHY2017BR023078

PATIENT
  Age: 48 Year
  Sex: Female

DRUGS (1)
  1. EXJADE [Suspect]
     Active Substance: DEFERASIROX
     Indication: SICKLE CELL ANAEMIA
     Dosage: 3 DF, QD (1500MG, QD)
     Route: 048

REACTIONS (9)
  - Pneumonia [Unknown]
  - Decreased appetite [Unknown]
  - Inappropriate schedule of drug administration [Unknown]
  - Musculoskeletal chest pain [Unknown]
  - Syncope [Unknown]
  - Headache [Unknown]
  - Bone disorder [Unknown]
  - Cerebrovascular accident [Unknown]
  - Back pain [Unknown]

NARRATIVE: CASE EVENT DATE: 20170102
